FAERS Safety Report 6031910-X (Version None)
Quarter: 2009Q1

REPORT INFORMATION
  Report Type: 
  Country: None (occurrence: None)
  Receive Date: 20090108
  Receipt Date: 20081225
  Transmission Date: 20090719
  Serious: Yes (Hospitalization)
  Sender: FDA-Public Use
  Company Number: JP-EISAI MEDICAL RESEARCH-E2090-00623-SPO-JP

PATIENT
  Sex: Female

DRUGS (6)
  1. EXCEGRAN [Suspect]
     Indication: EPILEPSY
     Route: 048
     Dates: end: 20081010
  2. MYSTAN [Concomitant]
     Indication: EPILEPSY
     Route: 048
  3. GASTER [Concomitant]
     Indication: GASTROINTESTINAL INFLAMMATION
     Route: 048
  4. MAALOX [Concomitant]
     Indication: GASTROINTESTINAL INFLAMMATION
     Route: 048
  5. GABALON [Concomitant]
     Indication: HYPERTONIA
     Route: 048
  6. ALFAROL [Concomitant]
     Indication: FANCONI SYNDROME
     Route: 048

REACTIONS (1)
  - HAEMATURIA [None]
